FAERS Safety Report 7463598-5 (Version None)
Quarter: 2011Q2

REPORT INFORMATION
  Report Type: 
  Country: None (occurrence: None)
  Receive Date: 20110506
  Receipt Date: 20110429
  Transmission Date: 20111010
  Serious: Yes (Other)
  Sender: FDA-Public Use
  Company Number: US-PFIZER INC-2011093585

PATIENT
  Age: 54 Year
  Sex: Female
  Weight: 78.005 kg

DRUGS (21)
  1. CARISOPRODOL [Suspect]
     Indication: MUSCLE RELAXANT THERAPY
     Dosage: 350 MG, 4X/DAY
     Route: 048
     Dates: start: 20100101
  2. IPRATROPIUM BROMIDE [Suspect]
     Indication: ASTHMA
     Dosage: 1 VIAL VIA NEBULIZER
     Dates: end: 20110416
  3. ONE-A-DAY WOMAN'S [Suspect]
     Indication: VITAMIN SUPPLEMENTATION
     Dosage: 1 TABLET DAILY
     Route: 048
  4. PROAIR HFA [Suspect]
     Indication: ASTHMA
     Dosage: 2 PUFFS, QID
     Route: 055
  5. PERCOCET [Suspect]
     Indication: MUSCULOSKELETAL PAIN
  6. ALBUTEROL SULFATE [Suspect]
     Indication: ASTHMA
     Dosage: 1 VIAL VIA NEBULIZER
     Dates: end: 20110416
  7. ZOLOFT [Suspect]
     Indication: DEPRESSION
     Dosage: 100 MG TABLET (2 AND 1/2), QPM
     Route: 048
     Dates: start: 19950101
  8. FENTANYL [Suspect]
     Indication: ARTHRALGIA
     Dosage: 75 UG, 1 PATCH Q 3 DAYS
     Route: 062
     Dates: start: 20110401
  9. NAPROXEN [Suspect]
     Indication: BACK PAIN
  10. PERCOCET [Suspect]
     Indication: ARTHRALGIA
     Dosage: 10/325 MG 1 TABLET, QID
     Route: 048
     Dates: start: 19950101
  11. PERCOCET [Suspect]
     Indication: BACK PAIN
  12. NEXIUM [Suspect]
     Indication: ABDOMINAL DISCOMFORT
     Dosage: 40 MG, DAILY
     Route: 048
     Dates: start: 20100101
  13. NAPROXEN [Suspect]
     Indication: ARTHRALGIA
     Dosage: 500 MG, 1 TAB TID TO QID
     Route: 048
     Dates: start: 20090101
  14. DIAZEPAM [Suspect]
     Indication: ANXIETY
     Dosage: 5 MG, 4X/DAY
     Route: 048
     Dates: start: 20100101
  15. FENTANYL [Suspect]
     Indication: MUSCULOSKELETAL PAIN
  16. FENTANYL [Suspect]
     Indication: BACK PAIN
  17. NAPROXEN [Suspect]
     Indication: MUSCULOSKELETAL PAIN
  18. FENTANYL [Suspect]
     Indication: PAIN IN EXTREMITY
  19. NAPROXEN [Suspect]
     Indication: PAIN IN EXTREMITY
  20. CALCIUM [Suspect]
     Indication: MINERAL SUPPLEMENTATION
     Dosage: 600 MG, 1 TABLET QAM AND 1 TAB QPM
  21. PERCOCET [Suspect]
     Indication: PAIN IN EXTREMITY

REACTIONS (6)
  - PYREXIA [None]
  - PHARYNGITIS STREPTOCOCCAL [None]
  - HYPERHIDROSIS [None]
  - DRUG INEFFECTIVE [None]
  - ABDOMINAL DISCOMFORT [None]
  - INCORRECT DOSE ADMINISTERED [None]
